FAERS Safety Report 6556595-5 (Version None)
Quarter: 2010Q1

REPORT INFORMATION
  Report Type: 
  Country: None (occurrence: None)
  Receive Date: 20100128
  Receipt Date: 20100119
  Transmission Date: 20100710
  Serious: Yes (Hospitalization, Other)
  Sender: FDA-Public Use
  Company Number: FR-PFIZER INC-2007082753

PATIENT
  Age: 41 Year
  Sex: Female

DRUGS (9)
  1. VFEND [Suspect]
     Indication: ASPERGILLOMA
     Dosage: 200 MG, UNK
     Route: 048
     Dates: start: 20050101, end: 20070827
  2. METHOTREXATE SODIUM [Suspect]
     Indication: RHEUMATOID ARTHRITIS
     Dosage: UNK
     Route: 048
     Dates: start: 20000101, end: 20040401
  3. METHOTREXATE SODIUM [Suspect]
     Route: 048
     Dates: start: 20030201
  4. METHOTREXATE SODIUM [Suspect]
     Route: 048
     Dates: start: 20030601
  5. CORTANCYL [Suspect]
     Indication: RHEUMATOID ARTHRITIS
     Route: 048
     Dates: start: 20020101
  6. TAXOL [Concomitant]
     Dates: start: 19990101
  7. TAXOL [Concomitant]
     Dates: start: 19990401
  8. PARAPLATIN [Concomitant]
     Dates: start: 19990101
  9. PARAPLATIN [Concomitant]
     Dates: start: 19990401

REACTIONS (4)
  - PHOTODERMATOSIS [None]
  - PHOTOSENSITIVITY REACTION [None]
  - SKIN CANCER [None]
  - SQUAMOUS CELL CARCINOMA [None]
